FAERS Safety Report 9882037 (Version 9)
Quarter: 2014Q3

REPORT INFORMATION
  Report Type: Spontaneous
  Country: US (occurrence: US)
  Receive Date: 20140207
  Receipt Date: 20140725
  Transmission Date: 20150326
  Serious: Yes (Hospitalization, Other)
  Sender: FDA-Public Use
  Company Number: PHEH2009US019112

PATIENT
  Age: 72 Year
  Sex: Female

DRUGS (51)
  1. AREDIA [Suspect]
     Active Substance: PAMIDRONATE DISODIUM
     Indication: METASTASES TO BONE
     Dosage: 90 MG
     Route: 042
     Dates: start: 20000417, end: 20060915
  2. TYLOX [Concomitant]
     Active Substance: ACETAMINOPHEN\OXYCODONE HYDROCHLORIDE
  3. MAVIK [Concomitant]
     Active Substance: TRANDOLAPRIL
  4. LOMOTIL [Concomitant]
     Active Substance: ATROPINE SULFATE\DIPHENOXYLATE HYDROCHLORIDE
  5. AROMASIN [Concomitant]
     Active Substance: EXEMESTANE
     Indication: BREAST CANCER
  6. REGLAN [Concomitant]
     Active Substance: METOCLOPRAMIDE HYDROCHLORIDE
  7. DOCUSATE [Concomitant]
     Active Substance: DOCUSATE
     Dosage: 100 MG, QD
     Route: 048
  8. CIPRO [Concomitant]
     Active Substance: CIPROFLOXACIN HYDROCHLORIDE
     Dosage: 500 MG, BID
     Route: 048
  9. MYCOSTATIN [Concomitant]
     Active Substance: NYSTATIN
     Route: 061
  10. LOVENOX [Concomitant]
     Active Substance: ENOXAPARIN SODIUM
     Dosage: 40 MG, QD
     Route: 058
  11. PHENERGAN [Concomitant]
     Active Substance: PROMETHAZINE HYDROCHLORIDE
  12. AMARYL [Concomitant]
     Active Substance: GLIMEPIRIDE
  13. DEPO-MEDROL [Concomitant]
     Active Substance: METHYLPREDNISOLONE ACETATE
     Route: 065
  14. CEFAZOLIN [Concomitant]
     Active Substance: CEFAZOLIN
     Route: 041
  15. HUMULIN NOS [Concomitant]
     Active Substance: INSULIN HUMAN
     Dosage: 15 U, QHS
     Route: 058
  16. XANAX [Concomitant]
     Active Substance: ALPRAZOLAM
  17. AREDIA [Suspect]
     Active Substance: PAMIDRONATE DISODIUM
     Indication: BREAST CANCER METASTATIC
  18. ZOMETA [Suspect]
     Active Substance: ZOLEDRONIC ACID
     Dosage: UNK UKN, UNK
     Route: 042
  19. FOSAMAX [Suspect]
     Active Substance: ALENDRONATE SODIUM
     Indication: OSTEITIS DEFORMANS
  20. SYNTHROID [Concomitant]
     Active Substance: LEVOTHYROXINE SODIUM
  21. POTASSIUM CHLORIDE. [Concomitant]
     Active Substance: POTASSIUM CHLORIDE
  22. FENTANYL. [Concomitant]
     Active Substance: FENTANYL
  23. OXYCONTIN [Concomitant]
     Active Substance: OXYCODONE HYDROCHLORIDE
  24. INSULIN [Concomitant]
     Active Substance: INSULIN NOS
  25. STEROIDS NOS [Concomitant]
     Active Substance: UNSPECIFIED INGREDIENT
     Route: 065
  26. ARIMIDEX ^ZENECA^ [Concomitant]
     Active Substance: ANASTROZOLE
  27. ABILIFY [Concomitant]
     Active Substance: ARIPIPRAZOLE
  28. AREDIA [Suspect]
     Active Substance: PAMIDRONATE DISODIUM
     Indication: OSTEOPOROSIS
  29. BEXTRA [Concomitant]
     Active Substance: VALDECOXIB
     Dosage: 10 MG, BID
     Route: 048
  30. LASIX [Concomitant]
     Active Substance: FUROSEMIDE
  31. NPH INSULIN [Concomitant]
     Active Substance: INSULIN BEEF
     Dosage: 15 U, QHS
     Route: 058
  32. NPH INSULIN [Concomitant]
     Active Substance: INSULIN BEEF
     Dosage: 20 U, QD
     Route: 058
  33. AMBIEN [Concomitant]
     Active Substance: ZOLPIDEM TARTRATE
  34. MORPHINE [Concomitant]
     Active Substance: MORPHINE
     Dosage: 25 MG/ML, UNK
     Route: 037
  35. LIDOCAINE. [Concomitant]
     Active Substance: LIDOCAINE
     Route: 065
  36. PERCOCET [Concomitant]
     Active Substance: ACETAMINOPHEN\OXYCODONE HYDROCHLORIDE
  37. ZESTRIL [Concomitant]
     Active Substance: LISINOPRIL
     Dosage: 10 MG, QD
     Route: 048
  38. ZYPREXA [Concomitant]
     Active Substance: OLANZAPINE
  39. ZOLOFT [Concomitant]
     Active Substance: SERTRALINE HYDROCHLORIDE
  40. HYDROCODONE [Concomitant]
     Active Substance: HYDROCODONE
  41. TRICOR [Concomitant]
     Active Substance: FENOFIBRATE
  42. ZANTAC [Concomitant]
     Active Substance: RANITIDINE HYDROCHLORIDE
  43. MECLIZINE [Concomitant]
     Active Substance: MECLIZINE\MECLIZINE HYDROCHLORIDE
     Dosage: 25 MG, TID
     Route: 048
  44. TAMOXIFEN [Concomitant]
     Active Substance: TAMOXIFEN
  45. AREDIA [Suspect]
     Active Substance: PAMIDRONATE DISODIUM
     Indication: OSTEITIS DEFORMANS
  46. FOSAMAX [Suspect]
     Active Substance: ALENDRONATE SODIUM
     Indication: OSTEOPOROSIS
     Dosage: UNK UKN, UNK
  47. NOLVADEX [Concomitant]
     Active Substance: TAMOXIFEN CITRATE
  48. LORTAB [Concomitant]
     Active Substance: ACETAMINOPHEN\HYDROCODONE BITARTRATE
     Dosage: 10 MG, PRN
     Route: 048
  49. FLEXERIL [Concomitant]
     Active Substance: CYCLOBENZAPRINE HYDROCHLORIDE
  50. SINGULAIR [Concomitant]
     Active Substance: MONTELUKAST SODIUM
     Dosage: 10 MG, QHS
     Route: 048
  51. RESTORIL [Concomitant]
     Active Substance: TEMAZEPAM
     Dosage: 7.5 MG, DAILY

REACTIONS (200)
  - Nephrolithiasis [Unknown]
  - Osteomyelitis [Unknown]
  - Fall [Recovering/Resolving]
  - Rhinitis allergic [Unknown]
  - Dysthymic disorder [Unknown]
  - Open angle glaucoma [Unknown]
  - Eyelid ptosis [Unknown]
  - Intervertebral disc degeneration [Unknown]
  - Lung infiltration [Unknown]
  - Hiatus hernia [Unknown]
  - Lung hyperinflation [Unknown]
  - Orthostatic hypotension [Unknown]
  - Dental caries [Unknown]
  - Constipation [Unknown]
  - Joint range of motion decreased [Unknown]
  - Nail dystrophy [Unknown]
  - Peripheral arterial occlusive disease [Unknown]
  - Pulmonary oedema [Unknown]
  - Psychotic disorder [Unknown]
  - Nausea [Unknown]
  - Ecchymosis [Unknown]
  - Metatarsalgia [Unknown]
  - Erythema induratum [Unknown]
  - Erythema [Unknown]
  - Renal cyst [Unknown]
  - Cellulitis [Recovering/Resolving]
  - Osteonecrosis of jaw [Recovering/Resolving]
  - Cholelithiasis [Unknown]
  - Back pain [Unknown]
  - Infection [Unknown]
  - Foot fracture [Unknown]
  - Cataract [Unknown]
  - Mood altered [Unknown]
  - Diabetic retinopathy [Unknown]
  - Haematuria [Unknown]
  - Cerebral atrophy [Unknown]
  - Aortic dilatation [Unknown]
  - Rib fracture [Unknown]
  - Hypercholesterolaemia [Unknown]
  - Urinary tract infection [Unknown]
  - Dysuria [Unknown]
  - Pleural fibrosis [Unknown]
  - Submandibular mass [Unknown]
  - Swelling [Unknown]
  - Periodontal disease [Unknown]
  - Upper-airway cough syndrome [Unknown]
  - Telangiectasia [Unknown]
  - Oedema [Unknown]
  - Amnesia [Unknown]
  - Ingrowing nail [Unknown]
  - Neuropathic arthropathy [Unknown]
  - Purulent discharge [Unknown]
  - Colitis [Unknown]
  - Ear pain [Unknown]
  - Paraesthesia [Unknown]
  - Injury [Unknown]
  - Vertigo [Unknown]
  - Metastases to spine [Unknown]
  - Lack of spontaneous speech [Unknown]
  - Arteriosclerosis [Unknown]
  - Chest pain [Unknown]
  - Cardiomegaly [Unknown]
  - Vertebral foraminal stenosis [Unknown]
  - Tremor [Unknown]
  - Loose tooth [Unknown]
  - Atelectasis [Unknown]
  - Cerumen impaction [Unknown]
  - Impaired healing [Unknown]
  - Productive cough [Unknown]
  - Scoliosis [Unknown]
  - Cerebral small vessel ischaemic disease [Unknown]
  - Renal failure [Unknown]
  - Visual impairment [Unknown]
  - Sacroiliitis [Unknown]
  - Cerebrovascular accident [Unknown]
  - Cardiac failure congestive [Unknown]
  - Vitreous detachment [Unknown]
  - Immunosuppression [Unknown]
  - Bladder disorder [Unknown]
  - Joint swelling [Unknown]
  - Vitreous opacities [Unknown]
  - Hyalosis asteroid [Unknown]
  - Bone swelling [Unknown]
  - Condition aggravated [Unknown]
  - Fibula fracture [Recovering/Resolving]
  - Macular degeneration [Unknown]
  - Ankle fracture [Unknown]
  - Skin ulcer [Unknown]
  - Migraine [Unknown]
  - Rotator cuff syndrome [Unknown]
  - Exposed bone in jaw [Unknown]
  - Gingival hyperplasia [Unknown]
  - Cerebellar atrophy [Unknown]
  - Oliguria [Unknown]
  - Kyphosis [Unknown]
  - Onychomycosis [Unknown]
  - Arthritis [Unknown]
  - Osteosclerosis [Unknown]
  - Varicose vein [Unknown]
  - Metastases to lymph nodes [Unknown]
  - Swelling face [Unknown]
  - Malignant hypertension [Unknown]
  - Cardiac disorder [Unknown]
  - Paronychia [Unknown]
  - Blister [Unknown]
  - Upper limb fracture [Unknown]
  - Bruxism [Unknown]
  - Hypoaesthesia [Unknown]
  - Confusional state [Unknown]
  - Emotional distress [Unknown]
  - Kyphoscoliosis [Unknown]
  - Abdominal pain [Unknown]
  - Chronic sinusitis [Unknown]
  - Skeletal injury [Unknown]
  - Malaise [Unknown]
  - Depression [Unknown]
  - Drug dependence [Unknown]
  - Haematoma [Unknown]
  - Age-related macular degeneration [Unknown]
  - Intervertebral disc space narrowing [Unknown]
  - Urinary incontinence [Unknown]
  - Dyspnoea [Unknown]
  - Polyp [Unknown]
  - Foot deformity [Unknown]
  - Hearing impaired [Unknown]
  - Tibia fracture [Unknown]
  - Coordination abnormal [Unknown]
  - Upper respiratory tract infection [Unknown]
  - Vascular calcification [Unknown]
  - Stomatitis [Unknown]
  - Ischaemia [Unknown]
  - Hallucination [Unknown]
  - Electrolyte imbalance [Unknown]
  - Pain [Unknown]
  - Anxiety [Unknown]
  - Anhedonia [Unknown]
  - Neck pain [Unknown]
  - Osteoarthritis [Unknown]
  - Peripheral vascular disorder [Unknown]
  - Stasis dermatitis [Unknown]
  - Intervertebral disc protrusion [Unknown]
  - Dyslipidaemia [Unknown]
  - Deep vein thrombosis [Unknown]
  - Groin pain [Unknown]
  - Peripheral venous disease [Unknown]
  - Intervertebral disc displacement [Unknown]
  - Bronchitis [Unknown]
  - Diabetic foot [Unknown]
  - Dementia [Unknown]
  - Visual acuity reduced [Unknown]
  - Joint crepitation [Unknown]
  - Dehydration [Unknown]
  - Laceration [Recovering/Resolving]
  - Pain in extremity [Not Recovered/Not Resolved]
  - Contusion [Unknown]
  - Lumbar spinal stenosis [Unknown]
  - Pneumonia [Unknown]
  - Arthralgia [Unknown]
  - Poor dental condition [Unknown]
  - Dental fistula [Unknown]
  - Spinal osteoarthritis [Unknown]
  - Pleural effusion [Unknown]
  - Dysphagia [Unknown]
  - Hyperkeratosis [Unknown]
  - Arterial insufficiency [Unknown]
  - Mental status changes [Unknown]
  - Respiratory failure [Unknown]
  - Aortic arteriosclerosis [Unknown]
  - Acute myocardial infarction [Unknown]
  - Osteopenia [Unknown]
  - Spinal pain [Unknown]
  - Lymphadenopathy [Unknown]
  - Gastrooesophageal reflux disease [Unknown]
  - Dyskinesia [Unknown]
  - Wound [Recovering/Resolving]
  - Rhinorrhoea [Unknown]
  - Mastication disorder [Unknown]
  - Eye disorder [Unknown]
  - Tooth loss [Unknown]
  - Adrenal mass [Unknown]
  - Adrenal adenoma [Unknown]
  - Asthenia [Unknown]
  - Insomnia [Unknown]
  - Cyclothymic disorder [Unknown]
  - Retinopathy hypertensive [Unknown]
  - Gait disturbance [Unknown]
  - Right ventricular failure [Unknown]
  - Exostosis [Unknown]
  - Emphysema [Unknown]
  - Osteolysis [Unknown]
  - Tooth fracture [Unknown]
  - Skin abrasion [Unknown]
  - Xerosis [Unknown]
  - Pain in jaw [Unknown]
  - Decubitus ulcer [Unknown]
  - Macular scar [Unknown]
  - Salivary gland pain [Unknown]
  - Gastric ulcer [Unknown]
  - Jaw disorder [Unknown]
  - Oedema peripheral [Unknown]

NARRATIVE: CASE EVENT DATE: 20040511
